FAERS Safety Report 5557063-X (Version None)
Quarter: 2007Q4

REPORT INFORMATION
  Report Type: 
  Country: None (occurrence: None)
  Receive Date: 20071214
  Receipt Date: 20071120
  Transmission Date: 20080405
  Serious: Yes (Death)
  Sender: FDA-Public Use
  Company Number: FR-BAYER-200710626BFR

PATIENT
  Age: 62 Year
  Sex: Male

DRUGS (23)
  1. SORAFENIB [Suspect]
     Indication: NON-SMALL CELL LUNG CANCER
     Dosage: TOTAL DAILY DOSE: 800 MG  UNIT DOSE: 200 MG
     Route: 048
     Dates: start: 20070803, end: 20070807
  2. SORAFENIB [Suspect]
     Dosage: TOTAL DAILY DOSE: 800 MG  UNIT DOSE: 200 MG
     Route: 048
     Dates: start: 20070810
  3. GEMCITABINE [Suspect]
     Indication: NON-SMALL CELL LUNG CANCER
     Route: 042
     Dates: start: 20070803, end: 20070803
  4. GEMCITABINE [Suspect]
     Route: 042
     Dates: start: 20070824, end: 20070824
  5. GEMCITABINE [Suspect]
     Route: 042
     Dates: start: 20070919, end: 20070919
  6. GEMCITABINE [Suspect]
     Route: 042
     Dates: start: 20071010
  7. CISPLATIN [Suspect]
     Indication: NON-SMALL CELL LUNG CANCER
     Route: 042
     Dates: start: 20070803, end: 20070803
  8. CISPLATIN [Suspect]
     Route: 042
     Dates: start: 20071010
  9. CISPLATIN [Suspect]
     Route: 042
     Dates: start: 20070919, end: 20070919
  10. CISPLATIN [Suspect]
     Route: 042
     Dates: start: 20070824, end: 20070824
  11. SERMION [Concomitant]
     Indication: QUADRIPLEGIA
     Route: 048
     Dates: start: 20070101
  12. VALIUM [Concomitant]
     Indication: ANXIETY
     Route: 048
     Dates: start: 20070101
  13. LIORESAL [Concomitant]
     Indication: NEURALGIA
     Dates: start: 20070701
  14. DURAGESIC-100 [Concomitant]
     Indication: CHEST PAIN
     Route: 062
     Dates: start: 20070801
  15. ACTISKENAN [Concomitant]
     Indication: CHEST PAIN
     Dates: start: 20070808
  16. RIVOTRIL [Concomitant]
     Indication: NEURALGIA
     Dates: start: 20070801
  17. ARANESP [Concomitant]
     Indication: ANAEMIA
     Dates: start: 20070803
  18. ECONAZOLE NITRATE [Concomitant]
     Indication: UNEVALUABLE EVENT
     Dates: start: 20070801
  19. DAKTARIN [Concomitant]
     Indication: FUNGAL INFECTION
     Dates: start: 20070801
  20. EDUCTYL [Concomitant]
     Indication: CONSTIPATION
     Dates: start: 20070801
  21. DEBRIDAT [Concomitant]
     Indication: GASTROINTESTINAL MOTILITY DISORDER
  22. PRIMPERAN INJ [Concomitant]
     Indication: PROPHYLAXIS OF NAUSEA AND VOMITING
     Dates: start: 20070803
  23. ACETAMINOPHEN [Concomitant]
     Indication: CHEST PAIN
     Dates: start: 20070801

REACTIONS (1)
  - PNEUMONIA ASPIRATION [None]
